FAERS Safety Report 24101949 (Version 2)
Quarter: 2024Q3

REPORT INFORMATION
  Report Type: Spontaneous
  Country: DE (occurrence: DE)
  Receive Date: 20240717
  Receipt Date: 20240722
  Transmission Date: 20241016
  Serious: Yes (Hospitalization, Other)
  Sender: ROCHE
  Company Number: DE-ROCHE-10000023811

PATIENT
  Sex: Male

DRUGS (1)
  1. OCREVUS [Suspect]
     Active Substance: OCRELIZUMAB
     Indication: Multiple sclerosis
     Route: 065

REACTIONS (12)
  - Pain in extremity [Unknown]
  - Pyrexia [Unknown]
  - Cough [Unknown]
  - Photophobia [Unknown]
  - Delusion [Unknown]
  - Hallucination [Unknown]
  - Varicella zoster virus infection [Unknown]
  - Atypical pneumonia [Unknown]
  - Drug reaction with eosinophilia and systemic symptoms [Unknown]
  - Liver function test increased [Unknown]
  - Inflammation [Unknown]
  - Idiosyncratic drug reaction [Unknown]
